FAERS Safety Report 5369718-0 (Version None)
Quarter: 2007Q2

REPORT INFORMATION
  Report Type: 
  Country: None (occurrence: None)
  Receive Date: 20070625
  Receipt Date: 20070619
  Transmission Date: 20071010
  Serious: Yes (Disabling, Other)
  Sender: FDA-Public Use
  Company Number: NL-BOEHRINGER INGELHEIM PHARMACEUTICALS, INC.-2007-BP-12570YA

PATIENT
  Sex: Male
  Weight: 70 kg

DRUGS (2)
  1. OMNIC OCAS ORODISPERSABLE CR [Suspect]
     Indication: HYPERTONIC BLADDER
     Route: 048
     Dates: start: 20061124, end: 20061224
  2. OMNIC OCAS ORODISPERSABLE CR [Suspect]
     Route: 048
     Dates: start: 20070122, end: 20070205

REACTIONS (3)
  - APTYALISM [None]
  - ARTHRALGIA [None]
  - EYE DISCHARGE [None]
